FAERS Safety Report 15015964 (Version 3)
Quarter: 2018Q3

REPORT INFORMATION
  Report Type: Spontaneous
  Country: US (occurrence: US)
  Receive Date: 20180615
  Receipt Date: 20180713
  Transmission Date: 20181010
  Serious: No
  Sender: FDA-Public Use
  Company Number: US-PFIZER INC-2018244015

PATIENT
  Age: 73 Year
  Sex: Female

DRUGS (3)
  1. TACROLIMUS. [Concomitant]
     Active Substance: TACROLIMUS
     Indication: ECZEMA
     Dosage: UNK, AS NEEDED [BID PRN]
  2. EUCRISA [Suspect]
     Active Substance: CRISABOROLE
     Indication: DERMATITIS ATOPIC
     Dosage: UNK, 2X/DAY
     Route: 061
     Dates: start: 20180425
  3. FLUOCINONIDE. [Concomitant]
     Active Substance: FLUOCINONIDE
     Indication: ECZEMA
     Dosage: UNK, 2X/DAY (BID X 2 WK/MONTH)

REACTIONS (1)
  - Rash [Unknown]

NARRATIVE: CASE EVENT DATE: 20180425
